FAERS Safety Report 10713136 (Version 1)
Quarter: 2015Q1

REPORT INFORMATION
  Report Type: Spontaneous
  Country: US (occurrence: US)
  Receive Date: 20150115
  Receipt Date: 20150115
  Transmission Date: 20150721
  Serious: No
  Sender: FDA-Public Use
  Company Number: US-ASTRAZENECA-2015SE04477

PATIENT
  Age: 66 Year
  Sex: Male
  Weight: 74.8 kg

DRUGS (9)
  1. PRILOSEC [Suspect]
     Active Substance: OMEPRAZOLE MAGNESIUM
     Indication: GASTROOESOPHAGEAL REFLUX DISEASE
     Route: 048
     Dates: start: 2004, end: 201411
  2. PRILOSEC OTC [Suspect]
     Active Substance: OMEPRAZOLE MAGNESIUM
     Indication: HYPERCHLORHYDRIA
     Route: 048
     Dates: start: 201411
  3. PRILOSEC OTC [Suspect]
     Active Substance: OMEPRAZOLE MAGNESIUM
     Indication: GASTROOESOPHAGEAL REFLUX DISEASE
     Dosage: CUTTING PRILOSEC OTC 20MG TABLETS IN HALF TO TAKE TWICE DAILY
     Route: 048
  4. AVODART [Concomitant]
     Active Substance: DUTASTERIDE
     Indication: CROHN^S DISEASE
     Route: 048
     Dates: start: 2010
  5. PRILOSEC [Suspect]
     Active Substance: OMEPRAZOLE MAGNESIUM
     Indication: HYPERCHLORHYDRIA
     Route: 048
     Dates: start: 2004, end: 201411
  6. PRILOSEC OTC [Suspect]
     Active Substance: OMEPRAZOLE MAGNESIUM
     Indication: HYPERCHLORHYDRIA
     Dosage: CUTTING PRILOSEC OTC 20MG TABLETS IN HALF TO TAKE TWICE DAILY
     Route: 048
  7. PRILOSEC OTC [Suspect]
     Active Substance: OMEPRAZOLE MAGNESIUM
     Indication: GASTROOESOPHAGEAL REFLUX DISEASE
     Route: 048
     Dates: start: 201411
  8. TRICOR [Concomitant]
     Active Substance: FENOFIBRATE
     Route: 048
     Dates: start: 2014
  9. PRAMIPEXOLE [Concomitant]
     Active Substance: PRAMIPEXOLE
     Indication: RESTLESS LEGS SYNDROME
     Route: 048
     Dates: start: 2013

REACTIONS (4)
  - Intentional product misuse [Unknown]
  - Intentional product use issue [Recovered/Resolved]
  - Dyspepsia [Unknown]
  - Off label use [Unknown]

NARRATIVE: CASE EVENT DATE: 2004
